FAERS Safety Report 7407447-X (Version None)
Quarter: 2011Q2

REPORT INFORMATION
  Report Type: 
  Country: None (occurrence: None)
  Receive Date: 20110411
  Receipt Date: 20110401
  Transmission Date: 20111010
  Serious: Yes (Death, Hospitalization)
  Sender: FDA-Public Use
  Company Number: US-AMGEN-USASP2011015117

PATIENT
  Age: 34 Year
  Sex: Male

DRUGS (9)
  1. STELARA [Concomitant]
     Dosage: 90 MG, QWK
     Route: 058
     Dates: start: 20091210, end: 20110208
  2. LEXAPRO [Concomitant]
  3. ENBREL [Suspect]
     Indication: PSORIASIS
     Dosage: 50 MG, QWK
     Route: 058
     Dates: start: 20080101, end: 20110301
  4. XANAX [Concomitant]
  5. METHOTREXATE [Concomitant]
  6. HUMIRA [Concomitant]
  7. LISINOPRIL [Concomitant]
  8. TRAZODONE [Concomitant]
  9. CAMPRAL                            /01016801/ [Concomitant]

REACTIONS (3)
  - LIVER INJURY [None]
  - DEATH [None]
  - GASTROINTESTINAL HAEMORRHAGE [None]
